FAERS Safety Report 4350659-2 (Version None)
Quarter: 2004Q2

REPORT INFORMATION
  Report Type: 
  Country: None (occurrence: None)
  Receive Date: 20040428
  Receipt Date: 20040419
  Transmission Date: 20050107
  Serious: Yes (Other)
  Sender: FDA-Public Use
  Company Number: HQWYE509019APR04

PATIENT
  Sex: Female

DRUGS (2)
  1. TRICEF (CEFIXIME, TABLET) [Suspect]
     Dosage: 400 MG DAILY
     Route: 048
     Dates: start: 20040306, end: 20040308
  2. IBUPROFEN [Suspect]
     Dosage: 1200 MG DAILY
     Route: 048
     Dates: start: 20040305, end: 20040308

REACTIONS (2)
  - THROAT LESION [None]
  - TONGUE ERUPTION [None]
